FAERS Safety Report 8221295-2 (Version None)
Quarter: 2012Q1

REPORT INFORMATION
  Report Type: 
  Country: None (occurrence: None)
  Receive Date: 20120313
  Receipt Date: 20120305
  Transmission Date: 20120608
  Serious: Yes (Life-Threatening, Hospitalization)
  Sender: FDA-Public Use
  Company Number: WAES 1203USA01098

PATIENT
  Age: 51 Year
  Sex: Male

DRUGS (3)
  1. VORINOSTAT [Concomitant]
  2. DECADRON [Suspect]
     Indication: GLIOBLASTOMA MULTIFORME
     Dosage: /PO
     Route: 048
  3. TEMODAR [Concomitant]

REACTIONS (3)
  - ANXIETY [None]
  - DEPRESSION [None]
  - SUICIDAL IDEATION [None]
